FAERS Safety Report 24190237 (Version 1)
Quarter: 2024Q3

REPORT INFORMATION
  Report Type: Spontaneous
  Country: US (occurrence: US)
  Receive Date: 20240808
  Receipt Date: 20240808
  Transmission Date: 20241017
  Serious: No
  Sender: Tarsus Pharmaceuticals
  Company Number: US-TARSUS PHARMACEUTICALS-TSP-US-2024-000305

PATIENT
  Sex: Male

DRUGS (1)
  1. XDEMVY [Suspect]
     Active Substance: LOTILANER
     Indication: Eyelid margin crusting
     Dosage: 1 DROP, BID (IN EACH EYE)
     Route: 047
     Dates: start: 2024

REACTIONS (3)
  - Eyelid margin crusting [Unknown]
  - Condition aggravated [Unknown]
  - Absence of immediate treatment response [Unknown]

NARRATIVE: CASE EVENT DATE: 20240101
